FAERS Safety Report 16652946 (Version 1)
Quarter: 2019Q3

REPORT INFORMATION
  Report Type: Spontaneous
  Country: US (occurrence: US)
  Receive Date: 20190731
  Receipt Date: 20190731
  Transmission Date: 20191004
  Serious: No
  Sender: FDA-Public Use
  Company Number: US-PARATEK PHARMACEUTICALS, INC.-2019PTK00036

PATIENT

DRUGS (2)
  1. NUZYRA [Suspect]
     Active Substance: OMADACYCLINE
     Indication: STAPHYLOCOCCAL INFECTION
  2. NUZYRA [Suspect]
     Active Substance: OMADACYCLINE
     Indication: LUNG INFECTION

REACTIONS (3)
  - Off label use [Unknown]
  - Staphylococcal infection [Unknown]
  - Incorrect product administration duration [Unknown]
